FAERS Safety Report 15539801 (Version 1)
Quarter: 2018Q4

REPORT INFORMATION
  Report Type: Spontaneous
  Country: GR (occurrence: GR)
  Receive Date: 20181023
  Receipt Date: 20181023
  Transmission Date: 20190205
  Serious: Yes (Other)
  Sender: FDA-Public Use
  Company Number: GR-TEVA-2018-GR-966359

PATIENT
  Age: 17 Year
  Sex: Male

DRUGS (20)
  1. ALL-TRANS-RETINOIC ACID [Suspect]
     Active Substance: TRETINOIN
     Indication: ACUTE PROMYELOCYTIC LEUKAEMIA
     Dosage: MAINTENANCE THERAPY WAS STARTED 45 MG/M2X15 DAYS EVERY 3 MONTHS
     Route: 065
  2. DEXAMETHASONE. [Concomitant]
     Active Substance: DEXAMETHASONE
     Indication: PROPHYLAXIS
     Dosage: 24MG X 15 DAYS
     Route: 042
  3. ALL-TRANS-RETINOIC ACID [Suspect]
     Active Substance: TRETINOIN
     Indication: ACUTE PROMYELOCYTIC LEUKAEMIA
     Dosage: FOLLOWED BY ANOTHER CYCLE OF MITOXANTRONE WITH TRETINOIN X 15 DAYS (CONSOLIDATION THERAPY)
     Route: 065
  4. IDARUBICIN [Concomitant]
     Active Substance: IDARUBICIN
     Indication: ACUTE PROMYELOCYTIC LEUKAEMIA
     Dosage: CONSOLIDATION THERAPY WITH IDARUBICIN 5 MG/M*2X4 DAYS AND TRETINOIN
     Route: 042
  5. METHOTREXATE. [Concomitant]
     Active Substance: METHOTREXATE
     Route: 065
  6. IDARUBICIN [Concomitant]
     Active Substance: IDARUBICIN
     Indication: ACUTE PROMYELOCYTIC LEUKAEMIA
     Dosage: CONSOLIDATION THERAPY WITH IDARUBICIN 5 MG/M*2X4 DAYS AND TRETINOIN
     Route: 065
  7. IDARUBICIN [Concomitant]
     Active Substance: IDARUBICIN
     Indication: ACUTE PROMYELOCYTIC LEUKAEMIA
     Dosage: A LAST CYCLE OF SINGLE DOSE WITH TRETINOIN
     Route: 065
  8. 6-MERCAPTOPURINE [Concomitant]
     Active Substance: MERCAPTOPURINE
     Dosage: 50 MG/M2 DAILY;
     Route: 048
  9. ARSENIC TRIOXIDE. [Suspect]
     Active Substance: ARSENIC TRIOXIDE
     Indication: ACUTE PROMYELOCYTIC LEUKAEMIA
  10. IDARUBICIN [Concomitant]
     Active Substance: IDARUBICIN
     Indication: ACUTE PROMYELOCYTIC LEUKAEMIA
     Dosage: INDUCTION THERAPY ON DAYS 2, 4, 6, 8
     Route: 042
  11. DEXAMETHASONE. [Concomitant]
     Active Substance: DEXAMETHASONE
     Indication: PROPHYLAXIS
     Dosage: AS PROPHYLAXIS AGAINST THE APL-DS
     Route: 042
  12. DEXAMETHASONE. [Concomitant]
     Active Substance: DEXAMETHASONE
     Indication: PROPHYLAXIS
     Dosage: 40 MILLIGRAM DAILY; DOSE INCREASED
     Route: 042
  13. ALL-TRANS-RETINOIC ACID [Suspect]
     Active Substance: TRETINOIN
     Indication: ACUTE PROMYELOCYTIC LEUKAEMIA
     Dosage: INDUCTION THERAPY WITH TRETINOIN CONTINUOUSLY AT A REDUCED DOSE
     Route: 048
  14. ALL-TRANS-RETINOIC ACID [Suspect]
     Active Substance: TRETINOIN
     Indication: ACUTE PROMYELOCYTIC LEUKAEMIA
     Dosage: ONE CYCLE OF IDARUBICINE WITH TRETINOIN X 15 DAYS (CONSOLIDATION THERAPY)
     Route: 065
  15. ALL-TRANS-RETINOIC ACID [Suspect]
     Active Substance: TRETINOIN
     Indication: ACUTE PROMYELOCYTIC LEUKAEMIA
     Dosage: LAST CYCLE OF IDARUBICINE WITH TRETINOIN X 15 DAYS (CONSOLIDATION THERAPY)
     Route: 065
  16. IDARUBICIN [Concomitant]
     Active Substance: IDARUBICIN
     Indication: ACUTE PROMYELOCYTIC LEUKAEMIA
     Dosage: A LAST CYCLE OF SINGLE DOSE WITH TRETINOIN
     Route: 042
  17. IDARUBICIN [Concomitant]
     Active Substance: IDARUBICIN
     Indication: ACUTE PROMYELOCYTIC LEUKAEMIA
     Dosage: CUMULATIVE DOSE
     Route: 042
  18. MITOXANTRONE [Concomitant]
     Active Substance: MITOXANTRONE HYDROCHLORIDE
     Indication: ACUTE PROMYELOCYTIC LEUKAEMIA
     Dosage: CONSOLIDATION THERAPY WITH ANOTHER CYCLE OF MITOXANTRONE 10MG/M*2 X 3 DAYS AND TRETINOIN
     Route: 065
  19. ARSENIC TRIOXIDE. [Suspect]
     Active Substance: ARSENIC TRIOXIDE
     Indication: SALVAGE THERAPY
     Dosage: .15 MG/KG DAILY;
     Route: 042
  20. IDARUBICIN [Concomitant]
     Active Substance: IDARUBICIN
     Indication: ACUTE PROMYELOCYTIC LEUKAEMIA
     Dosage: CUMULATIVE DOSE
     Route: 065

REACTIONS (2)
  - Myocarditis [Recovered/Resolved]
  - Differentiation syndrome [Recovered/Resolved]
